FAERS Safety Report 5142031-2 (Version None)
Quarter: 2006Q4

REPORT INFORMATION
  Report Type: 
  Country: None (occurrence: None)
  Receive Date: 20061102
  Receipt Date: 20060905
  Transmission Date: 20070319
  Serious: Yes (Other)
  Sender: FDA-Public Use
  Company Number: PHNU2006DE03023

PATIENT
  Sex: Male

DRUGS (4)
  1. ZOMETA [Suspect]
     Indication: METASTASES TO BONE
     Dosage: 4 MG, QMO
     Route: 042
     Dates: start: 20051101, end: 20060601
  2. DOCETAXEL [Suspect]
     Dosage: UNK, BIW
     Dates: start: 20060201, end: 20060601
  3. ESTRACYT [Suspect]
     Route: 065
     Dates: start: 20050801
  4. DEXAMETHASONE [Concomitant]
     Dosage: 10 MG, UNK
     Route: 065
     Dates: start: 20051101

REACTIONS (1)
  - OSTEONECROSIS [None]
